FAERS Safety Report 10087436 (Version 1)
Quarter: 2014Q2

REPORT INFORMATION
  Report Type: Spontaneous
  Country: US (occurrence: US)
  Receive Date: 20140418
  Receipt Date: 20140418
  Transmission Date: 20141212
  Serious: Yes (Other)
  Sender: FDA-Public Use
  Company Number: US-PURDUE-USA-2014-0112787

PATIENT
  Sex: Male

DRUGS (1)
  1. OXYCONTIN (NDA 22-272) [Suspect]
     Indication: PRODUCT USED FOR UNKNOWN INDICATION
     Dosage: 20 MG, UNK

REACTIONS (11)
  - Drug abuse [Unknown]
  - Aggression [Unknown]
  - Mental impairment [Unknown]
  - Abnormal behaviour [Unknown]
  - Restlessness [Unknown]
  - Feeling abnormal [Unknown]
  - Confusional state [Unknown]
  - Psychomotor hyperactivity [Unknown]
  - Nervousness [Unknown]
  - Malaise [Unknown]
  - Disturbance in attention [Unknown]
